FAERS Safety Report 4798263-6 (Version None)
Quarter: 2005Q4

REPORT INFORMATION
  Report Type: 
  Country: None (occurrence: None)
  Receive Date: 20051006
  Receipt Date: 20051006
  Transmission Date: 20060501
  Serious: No
  Sender: FDA-Public Use
  Company Number: None

PATIENT
  Age: 25 Year
  Sex: Female

DRUGS (13)
  1. THYMOGLOBULIN [Suspect]
     Indication: RENAL TRANSPLANT
     Dosage: 75MG IV QD X 3 DAYS
     Route: 042
  2. VALCYTE [Concomitant]
  3. BACTRIM [Concomitant]
  4. PERCOCET [Concomitant]
  5. ZANTAC [Concomitant]
  6. NYSTATIN [Concomitant]
  7. TACROLIMUS [Concomitant]
  8. MYCOPHENOLATE [Concomitant]
  9. METOPROLOL [Concomitant]
  10. ESCITALOPRAM OXALATE [Concomitant]
  11. ATIVAN [Concomitant]
  12. SOLU-MEDROL [Concomitant]
  13. RITUXAN [Concomitant]

REACTIONS (3)
  - MYALGIA [None]
  - RASH ERYTHEMATOUS [None]
  - RASH PRURITIC [None]
